FAERS Safety Report 20127512 (Version 1)
Quarter: 2021Q4

REPORT INFORMATION
  Report Type: Spontaneous
  Country: US (occurrence: None)
  Receive Date: 20211129
  Receipt Date: 20211129
  Transmission Date: 20220303
  Serious: Yes (Other)
  Sender: FDA-Public Use
  Company Number: None

PATIENT
  Age: 40 Year
  Sex: Female
  Weight: 53.1 kg

DRUGS (4)
  1. BOTOX [Suspect]
     Active Substance: ONABOTULINUMTOXINA
     Indication: Skin cosmetic procedure
     Dosage: OTHER QUANTITY : 6 INJECTION UNITS;?
     Route: 030
     Dates: start: 20211123
  2. VITAMIN B COMPLEX [Concomitant]
     Active Substance: CYANOCOBALAMIN\DEXPANTHENOL\NIACINAMIDE\PYRIDOXINE HYDROCHLORIDE\RIBOFLAVIN 5^-PHOSPHATE SODIUM\THIA
  3. VITAMIN C [Concomitant]
     Active Substance: ASCORBIC ACID
  4. HERBALS [Concomitant]
     Active Substance: HERBALS

REACTIONS (8)
  - Spinal pain [None]
  - Loss of personal independence in daily activities [None]
  - Arthralgia [None]
  - Swollen tongue [None]
  - Appetite disorder [None]
  - Pharyngitis streptococcal [None]
  - Dysphagia [None]
  - Odynophagia [None]

NARRATIVE: CASE EVENT DATE: 20211123
